FAERS Safety Report 6054639-0 (Version None)
Quarter: 2009Q1

REPORT INFORMATION
  Report Type: 
  Country: None (occurrence: None)
  Receive Date: 20090128
  Receipt Date: 20090116
  Transmission Date: 20090719
  Serious: Yes (Death)
  Sender: FDA-Public Use
  Company Number: US-RANBAXY-2009RR-21006

PATIENT
  Age: 48 Year
  Sex: Female

DRUGS (12)
  1. VENLAFAXINE HCL [Suspect]
     Indication: SUICIDAL IDEATION
     Route: 048
  2. HYDROCODONE BITARTRATE AND ACETAMINOPHEN [Suspect]
     Indication: SUICIDAL IDEATION
     Route: 048
  3. TRAMADOL HCL [Suspect]
     Indication: SUICIDAL IDEATION
     Route: 048
  4. QUINAPRIL HYDROCHLORIDE [Suspect]
     Indication: SUICIDAL IDEATION
     Route: 048
  5. HYDROCHLOROTHIAZIDE [Suspect]
     Indication: SUICIDAL IDEATION
     Route: 048
  6. OLANZAPINE [Suspect]
     Indication: SUICIDAL IDEATION
     Route: 048
  7. IRBESARTAN [Suspect]
     Indication: SUICIDAL IDEATION
     Route: 048
  8. DIPHENOXYLATE HCL + ATROPINE SULFATE [Suspect]
     Indication: SUICIDAL IDEATION
     Route: 048
  9. THIAZOLIDINEDIONE [Suspect]
     Indication: SUICIDAL IDEATION
     Route: 048
  10. BUPROPION HCL [Suspect]
     Indication: SUICIDAL IDEATION
     Route: 048
  11. COCAINE [Suspect]
     Indication: SUICIDAL IDEATION
     Route: 048
  12. BENZODIAZEPINE [Suspect]
     Indication: SUICIDAL IDEATION
     Route: 048

REACTIONS (1)
  - SUICIDAL IDEATION [None]
